FAERS Safety Report 4477643-2 (Version None)
Quarter: 2004Q4

REPORT INFORMATION
  Report Type: 
  Country: None (occurrence: None)
  Receive Date: 20041014
  Receipt Date: 20041001
  Transmission Date: 20050328
  Serious: Yes (Other)
  Sender: FDA-Public Use
  Company Number: 2004075238

PATIENT
  Age: 36 Year
  Sex: Female
  Weight: 61.2356 kg

DRUGS (4)
  1. ZYRTEC [Suspect]
     Indication: HYPERSENSITIVITY
     Dosage: 10 MG (10 MG, 1 IN 1 D)
  2. MIDOL [Concomitant]
  3. CALCIUM (CALCIUM) [Concomitant]
  4. VITAMINS (VITAMINS) [Concomitant]

REACTIONS (7)
  - CHEST DISCOMFORT [None]
  - FEELING HOT [None]
  - RASH PAPULAR [None]
  - RASH PRURITIC [None]
  - THROAT TIGHTNESS [None]
  - TREMOR [None]
  - WHEEZING [None]
